FAERS Safety Report 11193796 (Version 3)
Quarter: 2015Q3

REPORT INFORMATION
  Report Type: Spontaneous
  Country: US (occurrence: US)
  Receive Date: 20150616
  Receipt Date: 20150716
  Transmission Date: 20151125
  Serious: Yes (Hospitalization, Other)
  Sender: FDA-Public Use
  Company Number: US-GLAXOSMITHKLINE-US2015082834

PATIENT
  Sex: Female

DRUGS (6)
  1. WELLBUTRIN [Interacting]
     Active Substance: BUPROPION HYDROCHLORIDE
     Indication: EATING DISORDER
  2. CLONIDINE. [Concomitant]
     Active Substance: CLONIDINE
  3. CELEXA [Concomitant]
     Active Substance: CITALOPRAM HYDROBROMIDE
  4. AVANDIA [Interacting]
     Active Substance: ROSIGLITAZONE MALEATE
     Indication: PRODUCT USED FOR UNKNOWN INDICATION
  5. PAXIL [Interacting]
     Active Substance: PAROXETINE HYDROCHLORIDE
     Indication: PRODUCT USED FOR UNKNOWN INDICATION
     Dosage: UNK, U
     Dates: start: 1993
  6. WELLBUTRIN [Suspect]
     Active Substance: BUPROPION HYDROCHLORIDE
     Indication: DEPRESSION
     Dosage: 50 MG, BID
     Route: 048
     Dates: start: 1993, end: 1999

REACTIONS (12)
  - Intentional self-injury [Recovered/Resolved]
  - Hallucination [Recovered/Resolved]
  - Malaise [Unknown]
  - Renal disorder [Unknown]
  - Dementia [Unknown]
  - Diarrhoea [Unknown]
  - Drug dependence [Unknown]
  - Cystitis interstitial [Not Recovered/Not Resolved]
  - Detoxification [Unknown]
  - Coeliac disease [Unknown]
  - Drug interaction [Unknown]
  - Schizophrenia [Unknown]
